FAERS Safety Report 4339821-2 (Version None)
Quarter: 2004Q2

REPORT INFORMATION
  Report Type: 
  Country: None (occurrence: None)
  Receive Date: 20040415
  Receipt Date: 20040415
  Transmission Date: 20050107
  Serious: Yes (Hospitalization, Other)
  Sender: FDA-Public Use
  Company Number: None

PATIENT
  Age: 76 Year
  Sex: Female
  Weight: 59 kg

DRUGS (15)
  1. THALIDOMIDE 100 MG PO QHS 4/13/04 [Suspect]
     Indication: MULTIPLE MYELOMA
     Dosage: 100 MG PO QHS
     Route: 048
     Dates: start: 20040413
  2. VINCRISINE Q 28 DAY CYCLE NEXT CYCLE STARTS 4/19/04 [Suspect]
     Dosage: Q 28 D CYCLE
     Dates: start: 20040419
  3. ADRIMYCIN Q 28 DAY CYCLE NEXT CYCLE STARTS 4/19/04 [Suspect]
     Dosage: Q 28 DAY CYCLE
     Dates: start: 20040419
  4. DEXAMETHASONE Q 28 DAY CYCLE NEXT CYCLE STARTS 4/19/04 [Suspect]
     Dosage: Q 28 DAY CYCLE
     Dates: start: 20040419
  5. THALIDOMIDE [Concomitant]
  6. COLACE [Concomitant]
  7. COUMIDIN [Concomitant]
  8. COMPAZINE [Concomitant]
  9. SENOKOT [Concomitant]
  10. SYNTHROID [Concomitant]
  11. M.V.I. [Concomitant]
  12. CALCIUM [Concomitant]
  13. PROTONIX [Concomitant]
  14. PRIMAXIN [Concomitant]
  15. BACTRIM [Concomitant]

REACTIONS (5)
  - FATIGUE [None]
  - HYPOXIA [None]
  - PNEUMONIA [None]
  - PYREXIA [None]
  - TACHYCARDIA [None]
